FAERS Safety Report 14391461 (Version 1)
Quarter: 2018Q1

REPORT INFORMATION
  Report Type: Spontaneous
  Country: CN (occurrence: CN)
  Receive Date: 20180116
  Receipt Date: 20180116
  Transmission Date: 20180509
  Serious: Yes (Death, Hospitalization)
  Sender: FDA-Public Use
  Company Number: CN-BAYER-2018-006977

PATIENT
  Age: 39 Year
  Sex: Female

DRUGS (1)
  1. ACETYLSALICYLIC ACID({=100 MG) [Suspect]
     Active Substance: ASPIRIN
     Indication: HYPERTENSION
     Dosage: UNK

REACTIONS (5)
  - Premature separation of placenta [Fatal]
  - Contraindicated product administered [None]
  - Pre-eclampsia [Fatal]
  - Exposure during pregnancy [None]
  - Medication monitoring error [None]

NARRATIVE: CASE EVENT DATE: 201507
